FAERS Safety Report 5260755-3 (Version None)
Quarter: 2007Q1

REPORT INFORMATION
  Report Type: 
  Country: None (occurrence: None)
  Receive Date: 20070309
  Receipt Date: 20070228
  Transmission Date: 20070707
  Serious: Yes (Death)
  Sender: FDA-Public Use
  Company Number: 2006UW22719

PATIENT
  Sex: Male
  Weight: 65.9 kg

DRUGS (1)
  1. SEROQUEL [Suspect]
     Dosage: CONTINUED UNTIL 2006 WHEN DECEASED
     Route: 048

REACTIONS (2)
  - DEATH [None]
  - HYPERGLYCAEMIA [None]
